FAERS Safety Report 16750492 (Version 1)
Quarter: 2019Q3

REPORT INFORMATION
  Report Type: Spontaneous
  Country: PR (occurrence: PR)
  Receive Date: 20190828
  Receipt Date: 20190828
  Transmission Date: 20191005
  Serious: Yes (Life-Threatening, Other)
  Sender: FDA-Public Use
  Company Number: PR-PFIZER INC-2019368426

PATIENT
  Age: 52 Year
  Sex: Female
  Weight: 68.93 kg

DRUGS (1)
  1. IBRANCE [Suspect]
     Active Substance: PALBOCICLIB
     Indication: BREAST CANCER FEMALE
     Dosage: 125 MG, DAILY
     Route: 048
     Dates: start: 20190818

REACTIONS (2)
  - Hyperhidrosis [Unknown]
  - Breast haemorrhage [Unknown]

NARRATIVE: CASE EVENT DATE: 20190818
